FAERS Safety Report 10421098 (Version 1)
Quarter: 2014Q3

REPORT INFORMATION
  Report Type: Spontaneous
  Country: US (occurrence: None)
  Receive Date: 20140722
  Receipt Date: 20140722
  Transmission Date: 20150326
  Serious: No
  Sender: FDA-Public Use
  Company Number: 163-100004-14055002

PATIENT
  Age: 54 Year
  Sex: Female
  Weight: 77.11 kg

DRUGS (2)
  1. OTEZLA [Suspect]
     Active Substance: APREMILAST
     Indication: PSORIASIS
     Dosage: 2 IN 1 D
     Route: 048
     Dates: start: 20140423, end: 2014
  2. PREDNISONE(PREDNISONE) (UNKNOWN) [Concomitant]

REACTIONS (6)
  - Diarrhoea [None]
  - Weight increased [None]
  - Nausea [None]
  - Headache [None]
  - Hyperhidrosis [None]
  - Joint swelling [None]

NARRATIVE: CASE EVENT DATE: 20140425
